FAERS Safety Report 5832524-4 (Version None)
Quarter: 2008Q3

REPORT INFORMATION
  Report Type: 
  Country: None (occurrence: None)
  Receive Date: 20080804
  Receipt Date: 20080729
  Transmission Date: 20090109
  Serious: Yes (Disabling, Other)
  Sender: FDA-Public Use
  Company Number: IN-BRISTOL-MYERS SQUIBB COMPANY-14286827

PATIENT
  Age: 28 Year
  Sex: Male

DRUGS (3)
  1. EFAVIRENZ [Suspect]
     Indication: HIV INFECTION
     Route: 048
  2. ZIDOVUDINE [Suspect]
     Route: 065
  3. LAMIVUDINE [Suspect]
     Route: 065

REACTIONS (2)
  - IMMUNE RECONSTITUTION SYNDROME [None]
  - TUBERCULOID LEPROSY [None]
